FAERS Safety Report 19140058 (Version 2)
Quarter: 2021Q2

REPORT INFORMATION
  Report Type: Spontaneous
  Country: JP (occurrence: JP)
  Receive Date: 20210415
  Receipt Date: 20210428
  Transmission Date: 20210717
  Serious: Yes (Hospitalization)
  Sender: FDA-Public Use
  Company Number: JP-BAYER-2021-123029

PATIENT
  Age: 73 Year
  Sex: Male

DRUGS (1)
  1. STIVARGA [Suspect]
     Active Substance: REGORAFENIB
     Indication: COLON CANCER
     Dosage: 2 WEEKS ON, 2 WEEKS OFF
     Dates: start: 20210311, end: 20210324

REACTIONS (3)
  - Traumatic fracture [None]
  - Fall [None]
  - Off label use [None]

NARRATIVE: CASE EVENT DATE: 20210405
